FAERS Safety Report 21567643 (Version 1)
Quarter: 2022Q4

REPORT INFORMATION
  Report Type: Report from Study
  Country: US (occurrence: US)
  Receive Date: 20221108
  Receipt Date: 20221108
  Transmission Date: 20230112
  Serious: Yes (Hospitalization)
  Sender: FDA-Public Use
  Company Number: US-ABBVIE-4191376

PATIENT
  Sex: Female

DRUGS (1)
  1. HUMIRA [Suspect]
     Active Substance: ADALIMUMAB
     Indication: Rheumatoid arthritis
     Dosage: CITRATE FREE?STRENGTH 40MG
     Route: 058
     Dates: start: 20221026

REACTIONS (4)
  - Adverse drug reaction [Recovered/Resolved]
  - Influenza like illness [Recovering/Resolving]
  - Sinusitis [Recovering/Resolving]
  - Illness [Unknown]
